FAERS Safety Report 7059376-1 (Version None)
Quarter: 2010Q4

REPORT INFORMATION
  Report Type: 
  Country: None (occurrence: None)
  Receive Date: 20101025
  Receipt Date: 20101007
  Transmission Date: 20110411
  Serious: Yes (Hospitalization, Other)
  Sender: FDA-Public Use
  Company Number: BR-BAYER-201019738LA

PATIENT
  Age: 45 Year
  Sex: Female
  Weight: 60 kg

DRUGS (1)
  1. MIRENA [Suspect]
     Indication: ENDOMETRIAL HYPERTROPHY
     Route: 015
     Dates: start: 20101001, end: 20101006

REACTIONS (15)
  - ABDOMINAL DISTENSION [None]
  - ABDOMINAL PAIN [None]
  - ANAPHYLACTIC SHOCK [None]
  - APPLICATION SITE PAIN [None]
  - BACK PAIN [None]
  - DEVICE DISLOCATION [None]
  - INJURY ASSOCIATED WITH DEVICE [None]
  - MUSCLE SPASMS [None]
  - POLLAKIURIA [None]
  - PROCEDURAL PAIN [None]
  - UTERINE CONTRACTIONS ABNORMAL [None]
  - UTERINE DISORDER [None]
  - UTERINE PERFORATION [None]
  - VAGINAL DISCHARGE [None]
  - VAGINAL HAEMORRHAGE [None]
